FAERS Safety Report 22615588 (Version 3)
Quarter: 2023Q2

REPORT INFORMATION
  Report Type: Spontaneous
  Country: RO (occurrence: RO)
  Receive Date: 20230619
  Receipt Date: 20230630
  Transmission Date: 20230722
  Serious: Yes (Death, Life-Threatening, Hospitalization, Other)
  Sender: FDA-Public Use
  Company Number: RO-MLMSERVICE-20230607-4333383-2

PATIENT
  Age: 62 Year
  Sex: Male

DRUGS (14)
  1. METHYLPREDNISOLONE SODIUM SUCCINATE [Suspect]
     Active Substance: METHYLPREDNISOLONE SODIUM SUCCINATE
     Indication: Organising pneumonia
     Dosage: 500 MG, PULSE THERAPY
  2. OXYGEN [Suspect]
     Active Substance: OXYGEN
     Indication: COVID-19 treatment
     Dosage: FREQ:1 MIN;ON FACE MASK
  3. OXYGEN [Suspect]
     Active Substance: OXYGEN
     Dosage: FREQ:1 MIN
  4. OXYGEN [Suspect]
     Active Substance: OXYGEN
     Dosage: FREQ:1 MIN
  5. OXYGEN [Suspect]
     Active Substance: OXYGEN
     Dosage: FREQ:1 MIN
  6. PREDNISONE [Suspect]
     Active Substance: PREDNISONE
     Indication: Organising pneumonia
     Dosage: 40MG/ZI
  7. DEXAMETHASONE [Suspect]
     Active Substance: DEXAMETHASONE
     Indication: COVID-19 treatment
     Dosage: 16 MG, 1X/DAY
     Route: 042
  8. DEXAMETHASONE [Suspect]
     Active Substance: DEXAMETHASONE
     Dosage: 8 MG, 1X/DAY ON DAY 25
     Route: 042
  9. DEXAMETHASONE [Suspect]
     Active Substance: DEXAMETHASONE
     Dosage: 8 MG
     Route: 042
  10. TAMSULOSIN [Concomitant]
     Active Substance: TAMSULOSIN
     Indication: Benign prostatic hyperplasia
     Dosage: UNK UNK, 1X/DAY
  11. ROSUVASTATIN [Concomitant]
     Active Substance: ROSUVASTATIN
     Indication: Dyslipidaemia
     Dosage: UNK UNK, 1X/DAY
  12. MEROPENEM [Concomitant]
     Active Substance: MEROPENEM
     Indication: Pneumonia bacterial
     Dosage: 1000 MG, 3X/DAY
     Route: 042
  13. MEROPENEM [Concomitant]
     Active Substance: MEROPENEM
     Indication: COVID-19 pneumonia
  14. DALTEPARIN [Concomitant]
     Active Substance: DALTEPARIN
     Indication: Anticoagulant therapy
     Dosage: 7500 IU, 2X/DAY

REACTIONS (5)
  - Haemodynamic instability [Fatal]
  - Pulmonary bullae rupture [Fatal]
  - Respiratory failure [Fatal]
  - Pneumothorax [Recovering/Resolving]
  - Pneumothorax [Recovering/Resolving]
